FAERS Safety Report 14919149 (Version 1)
Quarter: 2018Q2

REPORT INFORMATION
  Report Type: Report from Study
  Country: US (occurrence: US)
  Receive Date: 20180521
  Receipt Date: 20180521
  Transmission Date: 20180711
  Serious: Yes (Life-Threatening, Other)
  Sender: FDA-Public Use
  Company Number: US-JNJFOC-20180522546

PATIENT
  Sex: Female

DRUGS (1)
  1. STELARA [Suspect]
     Active Substance: USTEKINUMAB
     Indication: CROHN^S DISEASE
     Route: 042

REACTIONS (7)
  - Surgery [Unknown]
  - Nausea [Unknown]
  - Insomnia [Unknown]
  - Pallor [Unknown]
  - Paraesthesia [Unknown]
  - Vomiting [Unknown]
  - Seizure [Unknown]
